FAERS Safety Report 5093498-X (Version None)
Quarter: 2006Q3

REPORT INFORMATION
  Report Type: 
  Country: None (occurrence: None)
  Receive Date: 20060829
  Receipt Date: 20060816
  Transmission Date: 20061208
  Serious: Yes (Hospitalization)
  Sender: FDA-Public Use
  Company Number: 2006091780

PATIENT
  Age: 49 Year
  Sex: Male
  Weight: 90.7194 kg

DRUGS (10)
  1. ZIPRASIDONE HCL [Suspect]
     Indication: SCHIZOPHRENIA
     Dosage: 160 MG (80 MG, 2 IN 1 D), ORAL
     Route: 048
     Dates: start: 20060209
  2. NIFEDIPINE [Concomitant]
  3. CAPTOPRIL [Concomitant]
  4. ACTOS [Concomitant]
  5. HALDOL [Concomitant]
  6. COGENTIN [Concomitant]
  7. LIPITOR [Concomitant]
  8. GLYBURIDE [Concomitant]
  9. METFORMIN (METFORMIN) [Concomitant]
  10. BENADRYL [Concomitant]

REACTIONS (7)
  - AGGRESSION [None]
  - INAPPROPRIATE AFFECT [None]
  - LIBIDO INCREASED [None]
  - PRESSURE OF SPEECH [None]
  - PSYCHOMOTOR HYPERACTIVITY [None]
  - SCHIZOPHRENIA, DISORGANISED TYPE [None]
  - THINKING ABNORMAL [None]
